FAERS Safety Report 7408191-5 (Version None)
Quarter: 2011Q2

REPORT INFORMATION
  Report Type: 
  Country: None (occurrence: None)
  Receive Date: 20110412
  Receipt Date: 20101014
  Transmission Date: 20111010
  Serious: Yes (Hospitalization, Other)
  Sender: FDA-Public Use
  Company Number: US-BAYER-200933619NA

PATIENT
  Age: 32 Year
  Sex: Female
  Weight: 83.447 kg

DRUGS (9)
  1. OCELLA [Suspect]
     Indication: PREMENSTRUAL SYNDROME
     Dosage: UNK UNK, UNK
     Route: 048
     Dates: start: 20050101, end: 20090101
  2. ZOLOFT [Concomitant]
  3. YASMIN [Suspect]
     Indication: PREMENSTRUAL SYNDROME
     Dosage: UNK UNK, UNK
     Route: 048
     Dates: start: 20050101, end: 20090101
  4. YAZ [Suspect]
     Indication: PREMENSTRUAL SYNDROME
     Dosage: UNK UNK, UNK
     Route: 048
     Dates: start: 20050101, end: 20090101
  5. DIOVAN HCT [Concomitant]
  6. PROPOXYPHENE HYDROCHLORIDE [Concomitant]
  7. DARVOCET [Concomitant]
  8. BISOPROLOL [Concomitant]
  9. ZIAC [Concomitant]

REACTIONS (5)
  - GALLBLADDER INJURY [None]
  - PAIN [None]
  - CHOLELITHIASIS [None]
  - CHOLECYSTITIS [None]
  - DEPRESSION [None]
